FAERS Safety Report 11926350 (Version 2)
Quarter: 2016Q1

REPORT INFORMATION
  Report Type: Spontaneous
  Country: US (occurrence: US)
  Receive Date: 20160119
  Receipt Date: 20160217
  Transmission Date: 20160526
  Serious: Yes (Other)
  Sender: FDA-Public Use
  Company Number: US-BEH-2016057760

PATIENT
  Sex: Male
  Weight: 114 kg

DRUGS (29)
  1. ZEMAIRA [Suspect]
     Active Substance: .ALPHA.1-PROTEINASE INHIBITOR HUMAN
     Dosage: 984 MG/VL
     Route: 042
     Dates: start: 20090209
  2. ZEMAIRA [Suspect]
     Active Substance: .ALPHA.1-PROTEINASE INHIBITOR HUMAN
     Indication: ALPHA-1 ANTI-TRYPSIN DEFICIENCY
     Dosage: 971 MG VIALS
     Route: 042
  3. OXYGEN. [Concomitant]
     Active Substance: OXYGEN
  4. ASTELIN [Concomitant]
     Active Substance: AZELASTINE HYDROCHLORIDE
  5. POTASSIUM [Concomitant]
     Active Substance: POTASSIUM
  6. EPIPEN [Concomitant]
     Active Substance: EPINEPHRINE
  7. DIPHENHYDRAMINE. [Concomitant]
     Active Substance: DIPHENHYDRAMINE
  8. NOVOLOG [Concomitant]
     Active Substance: INSULIN ASPART
  9. PROAIR HFA [Concomitant]
     Active Substance: ALBUTEROL SULFATE
  10. BONIVA [Concomitant]
     Active Substance: IBANDRONATE SODIUM
  11. SODIUM CHLORIDE. [Concomitant]
     Active Substance: SODIUM CHLORIDE
  12. ATROVENT [Concomitant]
     Active Substance: IPRATROPIUM BROMIDE
  13. SYNTHROID [Concomitant]
     Active Substance: LEVOTHYROXINE SODIUM
  14. MATZIM [Concomitant]
     Active Substance: DILTIAZEM
  15. LMX [Concomitant]
     Active Substance: LIDOCAINE
  16. FENTANYL. [Concomitant]
     Active Substance: FENTANYL
  17. PERCOCET [Concomitant]
     Active Substance: ACETAMINOPHEN\OXYCODONE HYDROCHLORIDE
  18. NEXIUM [Concomitant]
     Active Substance: ESOMEPRAZOLE MAGNESIUM
  19. NEURONTIN [Concomitant]
     Active Substance: GABAPENTIN
  20. TEMAZEPAM. [Concomitant]
     Active Substance: TEMAZEPAM
  21. METOPROLOL. [Concomitant]
     Active Substance: METOPROLOL
  22. FUROSEMIDE. [Concomitant]
     Active Substance: FUROSEMIDE
  23. PRADAXA [Concomitant]
     Active Substance: DABIGATRAN ETEXILATE MESYLATE
  24. PRAVASTATIN [Concomitant]
     Active Substance: PRAVASTATIN\PRAVASTATIN SODIUM
  25. HEPARIN [Concomitant]
     Active Substance: HEPARIN SODIUM
  26. ASPIRIN. [Concomitant]
     Active Substance: ASPIRIN
  27. LANTUS [Concomitant]
     Active Substance: INSULIN GLARGINE
  28. PREDNISONE. [Concomitant]
     Active Substance: PREDNISONE
  29. DIGOXIN. [Concomitant]
     Active Substance: DIGOXIN

REACTIONS (1)
  - Pneumonia [Unknown]
